FAERS Safety Report 5660887-1 (Version None)
Quarter: 2008Q1

REPORT INFORMATION
  Report Type: 
  Country: None (occurrence: None)
  Receive Date: 20080311
  Receipt Date: 20080310
  Transmission Date: 20080703
  Serious: Yes (Other)
  Sender: FDA-Public Use
  Company Number: IT-BAYER-200814651GPV

PATIENT
  Age: 75 Year
  Sex: Male
  Weight: 80 kg

DRUGS (1)
  1. SORAFENIB [Suspect]
     Indication: METASTATIC RENAL CELL CARCINOMA
     Dosage: TOTAL DAILY DOSE: 800 MG
     Route: 048
     Dates: start: 20080221, end: 20080304

REACTIONS (1)
  - DEEP VEIN THROMBOSIS [None]
